FAERS Safety Report 6757664-7 (Version None)
Quarter: 2010Q2

REPORT INFORMATION
  Report Type: 
  Country: None (occurrence: None)
  Receive Date: 20100607
  Receipt Date: 20100528
  Transmission Date: 20101027
  Serious: Yes (Life-Threatening)
  Sender: FDA-Public Use
  Company Number: GB-JNJFOC-20100600145

PATIENT
  Age: 68 Year
  Sex: Female

DRUGS (3)
  1. INFLIXIMAB [Suspect]
     Indication: DRUG USE FOR UNKNOWN INDICATION
     Route: 042
  2. HUMIRA [Suspect]
     Indication: DRUG USE FOR UNKNOWN INDICATION
  3. AZATHIOPRINE [Suspect]
     Indication: DRUG USE FOR UNKNOWN INDICATION

REACTIONS (1)
  - HEPATOSPLENIC T-CELL LYMPHOMA [None]
